FAERS Safety Report 24122131 (Version 2)
Quarter: 2024Q3

REPORT INFORMATION
  Report Type: Report from Study
  Country: JP (occurrence: JP)
  Receive Date: 20240722
  Receipt Date: 20240812
  Transmission Date: 20241016
  Serious: Yes (Death, Other)
  Sender: JOHNSON AND JOHNSON
  Company Number: JP-JNJFOC-20240369797

PATIENT
  Age: 54 Year
  Sex: Female

DRUGS (9)
  1. BOSENTAN [Suspect]
     Active Substance: BOSENTAN
     Indication: Skin ulcer
     Dosage: IN THE MORNING AND EVENING
     Route: 048
     Dates: start: 20161213, end: 20170626
  2. BOSENTAN [Suspect]
     Active Substance: BOSENTAN
     Route: 048
     Dates: start: 20180612, end: 201806
  3. BOSENTAN [Suspect]
     Active Substance: BOSENTAN
     Route: 048
     Dates: start: 201806, end: 2018
  4. BOSENTAN [Suspect]
     Active Substance: BOSENTAN
     Route: 048
     Dates: start: 2018, end: 20181122
  5. BOSENTAN [Suspect]
     Active Substance: BOSENTAN
     Dosage: IN THE MORNING
     Route: 048
     Dates: start: 20180710, end: 20181122
  6. PREDONINE [Concomitant]
     Active Substance: PREDNISOLONE
     Indication: Systemic scleroderma
     Dosage: 5-10MG PER TIME1-3 TIMES PER DAY
     Route: 048
     Dates: start: 20161105
  7. ALPROSTADIL [Concomitant]
     Active Substance: ALPROSTADIL
     Indication: Systemic scleroderma
     Route: 042
     Dates: start: 20200107, end: 20200626
  8. CYCLOPHOSPHAMIDE [Concomitant]
     Active Substance: CYCLOPHOSPHAMIDE
     Indication: Systemic scleroderma
     Route: 042
     Dates: start: 20180724, end: 20180918
  9. METHYLPREDNISOLONE SODIUM SUCCINATE [Concomitant]
     Active Substance: METHYLPREDNISOLONE SODIUM SUCCINATE
     Indication: Systemic scleroderma
     Route: 042
     Dates: start: 20181016, end: 20181018

REACTIONS (4)
  - Death [Fatal]
  - Renal impairment [Unknown]
  - Alanine aminotransferase increased [Recovered/Resolved]
  - Gamma-glutamyltransferase increased [Recovered/Resolved]

NARRATIVE: CASE EVENT DATE: 20170324
